FAERS Safety Report 15601754 (Version 1)
Quarter: 2018Q4

REPORT INFORMATION
  Report Type: Spontaneous
  Country: US (occurrence: US)
  Receive Date: 20181109
  Receipt Date: 20181109
  Transmission Date: 20190205
  Serious: Yes (Other)
  Sender: FDA-Public Use
  Company Number: US-ASTRAZENECA-2018SF44288

PATIENT
  Sex: Female
  Weight: 71.7 kg

DRUGS (6)
  1. ALBUTEROL/VENTOLIN [Concomitant]
     Route: 065
     Dates: start: 201807
  2. ASMANEX [Concomitant]
     Active Substance: MOMETASONE FUROATE
     Route: 065
  3. PULMICORT FLEXHALER [Suspect]
     Active Substance: BUDESONIDE
     Indication: ASTHMA
     Route: 055
     Dates: start: 201808
  4. BUDESONIDE. [Suspect]
     Active Substance: BUDESONIDE
     Route: 048
  5. MONTELUKAST SODIUM. [Concomitant]
     Active Substance: MONTELUKAST SODIUM
     Indication: ASTHMA
     Route: 048
     Dates: start: 201807
  6. SYMBICORT [Suspect]
     Active Substance: BUDESONIDE\FORMOTEROL FUMARATE DIHYDRATE
     Indication: ASTHMA
     Dosage: UNKNOWN DOSE AND FREQUENCY UNKNOWN
     Route: 055

REACTIONS (8)
  - Feeling abnormal [Recovered/Resolved]
  - Intentional device misuse [Unknown]
  - Hyperphagia [Unknown]
  - Feeling jittery [Recovered/Resolved]
  - Weight increased [Unknown]
  - Off label use [Not Recovered/Not Resolved]
  - Cataract [Unknown]
  - Cough [Recovered/Resolved]
